FAERS Safety Report 22669991 (Version 2)
Quarter: 2024Q2

REPORT INFORMATION
  Report Type: Spontaneous
  Country: US (occurrence: US)
  Receive Date: 20230704
  Receipt Date: 20240627
  Transmission Date: 20240715
  Serious: Yes (Other)
  Sender: FDA-Public Use
  Company Number: US-ABBVIE-5313836

PATIENT
  Sex: Female

DRUGS (1)
  1. REFRESH RELIEVA [Suspect]
     Active Substance: CARBOXYMETHYLCELLULOSE SODIUM\GLYCERIN
     Indication: Dry eye
     Dosage: STRENGTH: CMC 5MG/ML, GLYCERIN 9MG/ML
     Route: 047
     Dates: start: 202305

REACTIONS (2)
  - Cataract [Unknown]
  - Dry eye [Unknown]
